FAERS Safety Report 5419345-1 (Version None)
Quarter: 2007Q3

REPORT INFORMATION
  Report Type: 
  Country: None (occurrence: None)
  Receive Date: 20070815
  Receipt Date: 20070815
  Transmission Date: 20080115
  Serious: Yes (Hospitalization)
  Sender: FDA-Public Use
  Company Number: None

PATIENT
  Age: 59 Year
  Sex: Female
  Weight: 73.2 kg

DRUGS (3)
  1. PLAVIX [Suspect]
     Indication: ANTIPLATELET THERAPY
     Dosage: 75 MG DAILY PO
     Route: 048
     Dates: start: 20070711, end: 20070801
  2. PLAVIX [Suspect]
     Indication: STENT PLACEMENT
     Dosage: 75 MG DAILY PO
     Route: 048
     Dates: start: 20070711, end: 20070801
  3. TICLID [Suspect]
     Dosage: 250 MG TWICE DAILY PO
     Route: 048
     Dates: start: 20070803, end: 20070806

REACTIONS (7)
  - ARTHRALGIA [None]
  - MOVEMENT DISORDER [None]
  - PAIN [None]
  - PAIN IN EXTREMITY [None]
  - RASH ERYTHEMATOUS [None]
  - SERUM SICKNESS [None]
  - URTICARIA [None]
